FAERS Safety Report 5659593-9 (Version None)
Quarter: 2008Q1

REPORT INFORMATION
  Report Type: 
  Country: None (occurrence: None)
  Receive Date: 20080311
  Receipt Date: 20080225
  Transmission Date: 20080703
  Serious: Yes (Other)
  Sender: FDA-Public Use
  Company Number: PHNU2008DE01191

PATIENT
  Sex: Female

DRUGS (2)
  1. KARIL [Suspect]
     Indication: COMPLEX REGIONAL PAIN SYNDROME
     Route: 045
     Dates: start: 19970301
  2. OBSIDAN [Concomitant]
     Indication: HYPERTENSION
     Dates: start: 19910101

REACTIONS (7)
  - ATRIAL FIBRILLATION [None]
  - CARDIAC VALVE DISEASE [None]
  - GENERAL PHYSICAL HEALTH DETERIORATION [None]
  - HYPERTENSION [None]
  - RADIOACTIVE IODINE THERAPY [None]
  - THYROID DISORDER [None]
  - VENOOCCLUSIVE LIVER DISEASE [None]
